FAERS Safety Report 8077665-9 (Version None)
Quarter: 2012Q1

REPORT INFORMATION
  Report Type: 
  Country: None (occurrence: None)
  Receive Date: 20120127
  Receipt Date: 20120123
  Transmission Date: 20120608
  Serious: Yes (Hospitalization)
  Sender: FDA-Public Use
  Company Number: PL-PFIZER INC-2009163133

PATIENT
  Age: 61 Year
  Sex: Male
  Weight: 80 kg

DRUGS (11)
  1. CEFTRIAXONE [Concomitant]
     Indication: INFECTION
     Dosage: 2 G, 1X/DAY
     Route: 042
  2. NADROPARINA [Concomitant]
     Indication: THROMBOSIS
     Dosage: 0.8 ML, 1X/DAY
     Route: 058
  3. GLICLAZIDE [Concomitant]
     Indication: DIABETES MELLITUS
     Dosage: 0.08 G, 2X/DAY
     Route: 048
  4. PREDNISONE TAB [Suspect]
     Indication: PROSTATE CANCER
     Dosage: 5 MG, 2X/DAY
     Route: 048
     Dates: start: 20081206, end: 20090129
  5. MORPHINE SULFATE [Concomitant]
     Indication: ANALGESIC THERAPY
     Dosage: 10 MG, AS NEEDED
     Route: 048
  6. ALLOPURINOL [Concomitant]
     Indication: BLOOD URIC ACID INCREASED
     Dosage: 0.1 G, 2X/DAY
     Route: 048
  7. ORNITHINE ASPARTATE [Concomitant]
     Indication: PROPHYLAXIS
     Dosage: 0.15 G, 2X/DAY
     Route: 048
  8. PHOSPHOLIPIDS [Concomitant]
     Indication: PROPHYLAXIS
     Dosage: 0.3 G, 2X/DAY
     Route: 048
  9. OMEPRAZOLE [Concomitant]
     Indication: PROPHYLAXIS
     Dosage: 20 MG, 1X/DAY
     Route: 048
  10. PLACEBO [Suspect]
     Indication: PROSTATE CANCER
     Dosage: UNK, 1X/DAY
     Route: 048
     Dates: start: 20081206, end: 20090128
  11. FURAGIN [Concomitant]
     Indication: PROPHYLAXIS
     Dosage: 0.05 G, 2X/DAY
     Route: 048

REACTIONS (2)
  - RENAL FAILURE [None]
  - URINARY TRACT INFECTION [None]
